FAERS Safety Report 4761033-9 (Version None)
Quarter: 2005Q3

REPORT INFORMATION
  Report Type: 
  Country: None (occurrence: None)
  Receive Date: 20050901
  Receipt Date: 20050816
  Transmission Date: 20060218
  Serious: Yes (Hospitalization)
  Sender: FDA-Public Use
  Company Number: 2005001605

PATIENT
  Age: 37 Year
  Sex: Female

DRUGS (2)
  1. TARCEVA [Suspect]
     Indication: BREAST CANCER METASTATIC
     Dosage: 150MG (QD), ORAL
     Route: 048
     Dates: start: 20050707, end: 20050721
  2. AVASTIN [Suspect]
     Indication: BREAST CANCER METASTATIC
     Dosage: 10MG/KG (Q 2 WEEKS), INTRAVENOUS
     Route: 042
     Dates: start: 20050616

REACTIONS (1)
  - SMALL INTESTINAL OBSTRUCTION [None]
